FAERS Safety Report 10157140 (Version 3)
Quarter: 2015Q1

REPORT INFORMATION
  Report Type: Spontaneous
  Country: US (occurrence: US)
  Receive Date: 20140507
  Receipt Date: 20150303
  Transmission Date: 20150720
  Serious: No
  Sender: FDA-Public Use
  Company Number: US-PFIZER INC-2014124323

PATIENT
  Age: 53 Year
  Sex: Female

DRUGS (9)
  1. CELEBREX [Suspect]
     Active Substance: CELECOXIB
     Indication: PAIN
  2. GABAPENTIN. [Suspect]
     Active Substance: GABAPENTIN
  3. NEURONTIN [Suspect]
     Active Substance: GABAPENTIN
     Indication: NEURALGIA
     Dosage: UNK (UP TO 3600MG IN A DAY)
     Route: 048
     Dates: start: 2002
  4. CELECOXIB. [Suspect]
     Active Substance: CELECOXIB
     Dosage: UNK
  5. CELEBREX [Suspect]
     Active Substance: CELECOXIB
     Indication: KNEE DEFORMITY
  6. OXYCODONE [Concomitant]
     Active Substance: OXYCODONE
     Dosage: 2 DF, 4X/DAY
  7. CELEBREX [Suspect]
     Active Substance: CELECOXIB
     Indication: OSTEOARTHRITIS
     Dosage: 200 MG, 2X/DAY WITH FOOD
     Route: 048
  8. CELEBREX [Suspect]
     Active Substance: CELECOXIB
     Indication: BONE PAIN
  9. DIAZEPAM. [Concomitant]
     Active Substance: DIAZEPAM
     Dosage: 90 MG, 3X/DAY
     Dates: start: 2002

REACTIONS (8)
  - Drug hypersensitivity [Unknown]
  - Herpes zoster [Unknown]
  - Pain [Unknown]
  - Malaise [Unknown]
  - Weight increased [Unknown]
  - Dyskinesia [Unknown]
  - Neuralgia [Unknown]
  - Dyspnoea [Unknown]
